FAERS Safety Report 6868496-3 (Version None)
Quarter: 2010Q3

REPORT INFORMATION
  Report Type: 
  Country: None (occurrence: None)
  Receive Date: 20100722
  Receipt Date: 20080603
  Transmission Date: 20110219
  Serious: Yes (Other)
  Sender: FDA-Public Use
  Company Number: US-PFIZER INC-2008047220

PATIENT

DRUGS (1)
  1. CHANTIX [Suspect]

REACTIONS (2)
  - HALLUCINATION [None]
  - INSOMNIA [None]
